FAERS Safety Report 6603172-3 (Version None)
Quarter: 2010Q1

REPORT INFORMATION
  Report Type: 
  Country: None (occurrence: None)
  Receive Date: 20100226
  Receipt Date: 20100216
  Transmission Date: 20100710
  Serious: Yes (Hospitalization)
  Sender: FDA-Public Use
  Company Number: AT-SANOFI-AVENTIS-2010SA009154

PATIENT
  Age: 54 Year
  Sex: Male

DRUGS (3)
  1. RIFOLDIN [Suspect]
     Indication: GROIN ABSCESS
     Dosage: STARTED THERAPY AT END OF SEP-2009 AND STOPPED 12 DAYS LATER BEGINNING OF OCT-2009
     Route: 048
     Dates: start: 20090901, end: 20091001
  2. ANTIHYPERTENSIVES [Concomitant]
     Indication: HYPERTENSION
     Dosage: STARTED LONG TERM BACK
     Route: 065
  3. ANALGESICS [Concomitant]
     Indication: DRUG USE FOR UNKNOWN INDICATION
     Dosage: FOR LONG TERM
     Route: 065

REACTIONS (3)
  - BLOOD PRESSURE INCREASED [None]
  - CEREBROVASCULAR ACCIDENT [None]
  - DYSPNOEA [None]
